FAERS Safety Report 12036754 (Version 2)
Quarter: 2016Q1

REPORT INFORMATION
  Report Type: Report from Study
  Country: US (occurrence: US)
  Receive Date: 20160208
  Receipt Date: 20160303
  Transmission Date: 20160526
  Serious: Yes (Other)
  Sender: FDA-Public Use
  Company Number: US-ROCHE-1255010

PATIENT
  Age: 50 Year
  Sex: Female
  Weight: 67.65 kg

DRUGS (5)
  1. ZYFLO [Concomitant]
     Active Substance: ZILEUTON
     Indication: ASTHMA
     Route: 048
     Dates: start: 2011
  2. XOLAIR [Suspect]
     Active Substance: OMALIZUMAB
     Indication: ASTHMA
     Dosage: MOST RECENT DOSE ON 13/MAR/2015
     Route: 058
  3. TOPAMAX [Concomitant]
     Active Substance: TOPIRAMATE
     Indication: MIGRAINE
     Dosage: 50MG AT NIGHT AND 25MG IN THE MORNING ONCE A DAY
     Route: 048
     Dates: start: 2013
  4. THEOPHYLLINE [Concomitant]
     Active Substance: THEOPHYLLINE ANHYDROUS
     Indication: ASTHMA
     Route: 048
     Dates: start: 201301
  5. KLOR-CON [Concomitant]
     Active Substance: POTASSIUM CHLORIDE
     Indication: BLOOD POTASSIUM DECREASED
     Dosage: 40MG TO 60MG
     Route: 048
     Dates: start: 2011

REACTIONS (3)
  - Migraine [Unknown]
  - Drug dose omission [Unknown]
  - Migraine [Not Recovered/Not Resolved]

NARRATIVE: CASE EVENT DATE: 2012
